FAERS Safety Report 6175609-8 (Version None)
Quarter: 2009Q2

REPORT INFORMATION
  Report Type: 
  Country: None (occurrence: None)
  Receive Date: 20090429
  Receipt Date: 20090416
  Transmission Date: 20091009
  Serious: Yes (Death, Hospitalization)
  Sender: FDA-Public Use
  Company Number: 1000005600

PATIENT
  Age: 90 Year
  Sex: Female

DRUGS (6)
  1. CITALOPRAM HYDROBROMIDE [Suspect]
     Indication: DEPRESSION
     Dosage: 20 MG (20 MG,  1IN 1 D), ORAL
     Route: 048
  2. ACENOCUMAROL(TABLETS) [Suspect]
     Indication: ATRIAL FIBRILLATION
     Dosage: (20 MG),ORAL
     Route: 048
     Dates: end: 20080611
  3. AMIODARONE HCL [Suspect]
     Dosage: 200 MG (200 MG, 1 IN 1 D), ORAL
     Route: 048
  4. IRBESARTAN (TABLETS) [Concomitant]
  5. FLUNITRAZEPAM (TABLETS) [Concomitant]
  6. TORASEMIDE (TABLETS) [Concomitant]

REACTIONS (6)
  - BLOOD PRESSURE SYSTOLIC INCREASED [None]
  - EPISTAXIS [None]
  - HAEMATOCRIT DECREASED [None]
  - HAEMOGLOBIN DECREASED [None]
  - HYPERTENSIVE CRISIS [None]
  - INTERNATIONAL NORMALISED RATIO INCREASED [None]
